FAERS Safety Report 7951982-2 (Version None)
Quarter: 2011Q4

REPORT INFORMATION
  Report Type: 
  Country: None (occurrence: None)
  Receive Date: 20111201
  Receipt Date: 20111122
  Transmission Date: 20120403
  Serious: Yes (Death, Other)
  Sender: FDA-Public Use
  Company Number: US-SANOFI-AVENTIS-2011SA068672

PATIENT
  Age: 64 Year
  Sex: Female

DRUGS (2)
  1. HUMALOG [Concomitant]
  2. LANTUS [Suspect]
     Dosage: DOSE:8 UNIT(S)
     Route: 058
     Dates: start: 20010101

REACTIONS (3)
  - MYOCARDIAL INFARCTION [None]
  - DEATH [None]
  - CARDIAC DISORDER [None]
